FAERS Safety Report 8436550-0 (Version None)
Quarter: 2012Q2

REPORT INFORMATION
  Report Type: 
  Country: None (occurrence: None)
  Receive Date: 20120614
  Receipt Date: 20120604
  Transmission Date: 20120825
  Serious: Yes (Hospitalization, Congenital Anomaly, Other)
  Sender: FDA-Public Use
  Company Number: DE-GLAXOSMITHKLINE-D0075835A

PATIENT
  Sex: Female
  Weight: 3.2 kg

DRUGS (1)
  1. PAROXETINE HCL [Suspect]
     Indication: DEPRESSION
     Dosage: 45MG PER DAY
     Route: 064

REACTIONS (9)
  - AGITATION NEONATAL [None]
  - FEELING JITTERY [None]
  - OXYGEN SATURATION ABNORMAL [None]
  - FOETAL EXPOSURE DURING PREGNANCY [None]
  - HYPOGLYCAEMIA NEONATAL [None]
  - CEPHALHAEMATOMA [None]
  - URACHAL ABNORMALITY [None]
  - DRUG WITHDRAWAL SYNDROME NEONATAL [None]
  - RESPIRATION ABNORMAL [None]
